FAERS Safety Report 6625547-9 (Version None)
Quarter: 2010Q1

REPORT INFORMATION
  Report Type: 
  Country: None (occurrence: None)
  Receive Date: 20100310
  Receipt Date: 20100301
  Transmission Date: 20100710
  Serious: Yes (Other)
  Sender: FDA-Public Use
  Company Number: CA-ABBOTT-10P-028-0625813-00

PATIENT
  Sex: Male

DRUGS (2)
  1. MAVIK [Suspect]
     Indication: HYPERTENSION
     Dates: start: 20091109
  2. INSULIN [Concomitant]
     Indication: DRUG USE FOR UNKNOWN INDICATION

REACTIONS (1)
  - ARTERIOSCLEROSIS [None]
